FAERS Safety Report 9627976 (Version 1)
Quarter: 2013Q4

REPORT INFORMATION
  Report Type: Spontaneous
  Country: US (occurrence: US)
  Receive Date: 20131016
  Receipt Date: 20131016
  Transmission Date: 20140711
  Serious: No
  Sender: FDA-Public Use
  Company Number: US-009507513-1309USA010350

PATIENT
  Age: 19 Year
  Sex: Female
  Weight: 52.7 kg

DRUGS (3)
  1. IMPLANON [Suspect]
     Indication: CONTRACEPTION
     Dosage: UNK
     Route: 059
     Dates: start: 20130307
  2. PROAIR (ALBUTEROL SULFATE) [Concomitant]
  3. TRAZODONE HYDROCHLORIDE [Concomitant]

REACTIONS (1)
  - Vaginal haemorrhage [Not Recovered/Not Resolved]
